FAERS Safety Report 10416340 (Version 1)
Quarter: 2014Q3

REPORT INFORMATION
  Report Type: Spontaneous
  Country: US (occurrence: None)
  Receive Date: 20140827
  Receipt Date: 20140827
  Transmission Date: 20150326
  Serious: Yes (Hospitalization)
  Sender: FDA-Public Use
  Company Number: None

PATIENT
  Age: 8 Year
  Sex: Female
  Weight: 29.94 kg

DRUGS (1)
  1. XYREM [Suspect]
     Active Substance: SODIUM OXYBATE
     Indication: POOR QUALITY SLEEP
     Dosage: 2.5 GM DILUTED IN 60 MLS OF WA AT BEDTIME TAKEN BY MOUTH
     Route: 048
     Dates: start: 20140326, end: 20140326

REACTIONS (2)
  - Convulsion [None]
  - Vomiting [None]

NARRATIVE: CASE EVENT DATE: 20140326
